FAERS Safety Report 9132239 (Version 1)
Quarter: 2013Q1

REPORT INFORMATION
  Report Type: Spontaneous
  Country: US (occurrence: US)
  Receive Date: 20130301
  Receipt Date: 20130301
  Transmission Date: 20140127
  Serious: No
  Sender: FDA-Public Use
  Company Number: US-PFIZER INC-2013073068

PATIENT
  Age: 3 Year
  Sex: Male
  Weight: 20.86 kg

DRUGS (1)
  1. JUNIOR STRENGTH ADVIL [Suspect]
     Dosage: 100 MG, ONCE A DAY
     Route: 048
     Dates: start: 201301, end: 201301

REACTIONS (4)
  - Drug administered to patient of inappropriate age [Unknown]
  - Oral discomfort [Recovered/Resolved]
  - Vomiting [Recovered/Resolved]
  - Nausea [Recovered/Resolved]
